FAERS Safety Report 9168080 (Version 1)
Quarter: 2013Q1

REPORT INFORMATION
  Report Type: Spontaneous
  Country: US (occurrence: None)
  Receive Date: 20130313
  Receipt Date: 20130313
  Transmission Date: 20140127
  Serious: Yes (Death)
  Sender: FDA-Public Use
  Company Number: 2013/049

PATIENT
  Age: 65 Year
  Sex: Female

DRUGS (2)
  1. AMLODIPINE (NO PREF. NAME) 5 MG [Suspect]
     Dates: start: 2011, end: 2011
  2. NEBIVOLOL [Suspect]
     Dates: start: 2011, end: 2011

REACTIONS (1)
  - Unevaluable event [None]
